FAERS Safety Report 11700632 (Version 1)
Quarter: 2015Q4

REPORT INFORMATION
  Report Type: Spontaneous
  Country: US (occurrence: US)
  Receive Date: 20151105
  Receipt Date: 20151105
  Transmission Date: 20160304
  Serious: Yes (Hospitalization)
  Sender: FDA-Public Use
  Company Number: US-AUROBINDO-AUR-APL-2013-09075

PATIENT

DRUGS (2)
  1. RISPERIDONE TABLETS 0.25 MG [Suspect]
     Active Substance: RISPERIDONE
     Indication: PRODUCT USED FOR UNKNOWN INDICATION
     Dosage: UNK UNK,UNK,
     Route: 065
  2. BENZOTROPINE [Suspect]
     Active Substance: BENZTROPINE
     Indication: PRODUCT USED FOR UNKNOWN INDICATION
     Dosage: UNK UNK,UNK,
     Route: 065

REACTIONS (10)
  - Anhidrosis [Unknown]
  - Mydriasis [Unknown]
  - Mucosal dryness [Unknown]
  - Delirium [Unknown]
  - Confusional state [Unknown]
  - Abnormal behaviour [Unknown]
  - Agitation [Unknown]
  - Poisoning [Unknown]
  - Tachycardia [Unknown]
  - Hallucination [Unknown]
